FAERS Safety Report 9933506 (Version 1)
Quarter: 2014Q1

REPORT INFORMATION
  Report Type: Spontaneous
  Country: DE (occurrence: None)
  Receive Date: 20140226
  Receipt Date: 20140226
  Transmission Date: 20141002
  Serious: Yes (Other)
  Sender: FDA-Public Use
  Company Number: NL01PV14.35371

PATIENT
  Age: 70 Year
  Sex: Female

DRUGS (1)
  1. UNKNOWN (ZOLPIDEM) TABLET [Suspect]
     Indication: SLEEP DISORDER
     Route: 048
     Dates: start: 2001, end: 2014

REACTIONS (3)
  - Drug dependence [None]
  - Drug ineffective [None]
  - Off label use [None]
